FAERS Safety Report 14768013 (Version 3)
Quarter: 2019Q2

REPORT INFORMATION
  Report Type: Spontaneous
  Country: IT (occurrence: IT)
  Receive Date: 20180417
  Receipt Date: 20190524
  Transmission Date: 20190711
  Serious: Yes (Other)
  Sender: FDA-Public Use
  Company Number: IT-ROCHE-2108723

PATIENT
  Age: 92 Year
  Sex: Female

DRUGS (8)
  1. CARDIOASPIRIN [Concomitant]
     Active Substance: ASPIRIN
  2. LOBIVON [Concomitant]
     Active Substance: NEBIVOLOL HYDROCHLORIDE
  3. MOVICOL [Concomitant]
     Active Substance: POLYETHYLENE GLYCOL 3350\POTASSIUM CHLORIDE\SODIUM BICARBONATE\SODIUM CHLORIDE
  4. LIBRADIN [BARNIDIPINE HYDROCHLORIDE] [Concomitant]
     Route: 065
  5. DIBASE [Concomitant]
     Active Substance: CHOLECALCIFEROL
  6. RIVOTRIL [Suspect]
     Active Substance: CLONAZEPAM
     Indication: EPILEPSY
     Dosage: UNIT DOSE: 25 [DRP]
     Route: 048
  7. DELORAZEPAM [Suspect]
     Active Substance: DELORAZEPAM
     Indication: ANXIETY
     Dosage: UNIT DOSE: 13 [DRP]
     Route: 048
  8. LASIX [Concomitant]
     Active Substance: FUROSEMIDE

REACTIONS (3)
  - Oxygen saturation decreased [Recovered/Resolved]
  - Overdose [Unknown]
  - Sopor [Recovered/Resolved]

NARRATIVE: CASE EVENT DATE: 20180121
